FAERS Safety Report 14257614 (Version 2)
Quarter: 2017Q4

REPORT INFORMATION
  Report Type: Spontaneous
  Country: US (occurrence: US)
  Receive Date: 20171207
  Receipt Date: 20171208
  Transmission Date: 20180321
  Serious: Yes (Other)
  Sender: FDA-Public Use
  Company Number: US-CIPLA LTD.-2017US18364

PATIENT

DRUGS (1)
  1. BUPROPION HYDROCHLORIDE XL [Suspect]
     Active Substance: BUPROPION HYDROCHLORIDE
     Dosage: 150 MG, UNK
     Route: 065

REACTIONS (6)
  - Product substitution issue [Unknown]
  - Nausea [Unknown]
  - Decreased interest [Unknown]
  - Middle insomnia [Unknown]
  - Fatigue [Unknown]
  - Headache [Unknown]
